FAERS Safety Report 12244343 (Version 1)
Quarter: 2016Q2

REPORT INFORMATION
  Report Type: Spontaneous
  Country: DE (occurrence: DE)
  Receive Date: 20160407
  Receipt Date: 20160407
  Transmission Date: 20160815
  Serious: Yes (Life-Threatening)
  Sender: FDA-Public Use
  Company Number: DE-JNJFOC-20160400508

PATIENT
  Age: 22 Year
  Sex: Female
  Weight: 60 kg

DRUGS (3)
  1. IBUPROFEN. [Suspect]
     Active Substance: IBUPROFEN
     Route: 048
  2. ASS-RATIOPHARM [Suspect]
     Active Substance: ASPIRIN
     Indication: DYSMENORRHOEA
     Route: 048
     Dates: start: 20160328, end: 20160328
  3. IBUPROFEN. [Suspect]
     Active Substance: IBUPROFEN
     Indication: PAIN
     Route: 048
     Dates: start: 201602, end: 201603

REACTIONS (4)
  - Anaphylactic reaction [Recovered/Resolved]
  - Eye oedema [Recovered/Resolved]
  - Cough [Recovered/Resolved]
  - Respiratory distress [Recovered/Resolved]

NARRATIVE: CASE EVENT DATE: 20160328
